FAERS Safety Report 7371069-X (Version None)
Quarter: 2011Q1

REPORT INFORMATION
  Report Type: 
  Country: None (occurrence: None)
  Receive Date: 20110318
  Receipt Date: 20110318
  Transmission Date: 20110831
  Serious: Yes (Other)
  Sender: FDA-Public Use
  Company Number: None

PATIENT
  Age: 54 Year
  Sex: Female
  Weight: 61.0088 kg

DRUGS (1)
  1. NIASPAN [Suspect]
     Indication: LOW DENSITY LIPOPROTEIN INCREASED
     Dosage: 500 MG. DAILY PO
     Route: 048
     Dates: start: 20110314, end: 20110316

REACTIONS (4)
  - EYE SWELLING [None]
  - ABNORMAL SENSATION IN EYE [None]
  - DIZZINESS [None]
  - MACULAR OEDEMA [None]
